FAERS Safety Report 8334655 (Version 5)
Quarter: 2013Q1

REPORT INFORMATION
  Report Type: Spontaneous
  Country: US (occurrence: US)
  Receive Date: 20120112
  Receipt Date: 20130103
  Transmission Date: 20140127
  Serious: Yes (Disabling, Other)
  Sender: FDA-Public Use
  Company Number: PHEH2011US011756

PATIENT
  Age: 37 Year
  Sex: Female
  Weight: 111.11 kg

DRUGS (8)
  1. GILENYA [Suspect]
     Indication: MULTIPLE SCLEROSIS
     Dosage: 0.5 MG, QD
     Route: 048
     Dates: start: 20110507, end: 20111212
  2. GILENYA [Suspect]
     Dosage: 0.5 MG, QD
     Route: 048
     Dates: start: 20120302
  3. PROZAC [Concomitant]
     Dosage: UNK UKN, UNK
     Dates: start: 20110629
  4. ZANAFLEX [Concomitant]
     Dosage: 4 MG, PRN
     Route: 048
     Dates: start: 20110629
  5. DETROL [Concomitant]
     Dosage: 4 MG, QD
     Route: 048
     Dates: start: 20101101
  6. REQUIP [Concomitant]
     Dosage: 2 MG, QHS
     Dates: start: 20100818
  7. ABILIFY [Concomitant]
     Dosage: 5 MG, QD
     Route: 048
  8. HYDROXYZINE HCL [Concomitant]
     Dosage: 25 MG, QHS
     Route: 048

REACTIONS (9)
  - Mania [Recovering/Resolving]
  - Personality disorder [Not Recovered/Not Resolved]
  - Impulse-control disorder [Recovering/Resolving]
  - Aggression [Not Recovered/Not Resolved]
  - Agitation [Recovering/Resolving]
  - Irritability [Recovering/Resolving]
  - Hemiparesis [Not Recovered/Not Resolved]
  - Depression [Not Recovered/Not Resolved]
  - Malaise [Not Recovered/Not Resolved]
